FAERS Safety Report 13269964 (Version 1)
Quarter: 2017Q1

REPORT INFORMATION
  Report Type: Spontaneous
  Country: US (occurrence: US)
  Receive Date: 20170224
  Receipt Date: 20170224
  Transmission Date: 20170428
  Serious: Yes (Other)
  Sender: FDA-Public Use
  Company Number: PHHY2017US027977

PATIENT
  Age: 67 Year
  Sex: Female

DRUGS (2)
  1. COMBIPATCH [Suspect]
     Active Substance: ESTRADIOL\NORETHINDRONE ACETATE
     Indication: HOT FLUSH
     Dosage: 1 DF, QD
     Route: 062
  2. COMBIPATCH [Suspect]
     Active Substance: ESTRADIOL\NORETHINDRONE ACETATE
     Indication: NIGHT SWEATS
     Dosage: 1 DF, QD
     Route: 062

REACTIONS (7)
  - Application site pruritus [Recovered/Resolved]
  - Drug administered at inappropriate site [Unknown]
  - Blindness [Recovered/Resolved]
  - Blood pressure increased [Recovered/Resolved]
  - Application site exfoliation [Recovered/Resolved]
  - Application site swelling [Recovered/Resolved]
  - Application site urticaria [Recovered/Resolved]

NARRATIVE: CASE EVENT DATE: 201601
